FAERS Safety Report 26165332 (Version 1)
Quarter: 2025Q4

REPORT INFORMATION
  Report Type: Spontaneous
  Country: US (occurrence: US)
  Receive Date: 20251216
  Receipt Date: 20251216
  Transmission Date: 20260118
  Serious: Yes (Life-Threatening, Hospitalization)
  Sender: AMGEN
  Company Number: US-AMGEN-USASP2025240706

PATIENT
  Age: 66 Year
  Sex: Male

DRUGS (1)
  1. PREDNISONE [Suspect]
     Active Substance: PREDNISONE
     Indication: Rheumatoid arthritis
     Dosage: UNK, (INTERMITTENT)
     Route: 065

REACTIONS (7)
  - Respiratory depression [Unknown]
  - Myasthenia gravis [Unknown]
  - Hodgkin^s disease [Unknown]
  - Type 2 diabetes mellitus [Unknown]
  - Coronary artery disease [Unknown]
  - Obstructive sleep apnoea syndrome [Unknown]
  - Hypertension [Unknown]
